FAERS Safety Report 15691879 (Version 1)
Quarter: 2018Q4

REPORT INFORMATION
  Report Type: Spontaneous
  Country: DE (occurrence: DE)
  Receive Date: 20181205
  Receipt Date: 20181205
  Transmission Date: 20190205
  Serious: Yes (Hospitalization)
  Sender: FDA-Public Use
  Company Number: DE-JNJFOC-20181135106

PATIENT
  Sex: Female

DRUGS (1)
  1. REMICADE [Suspect]
     Active Substance: INFLIXIMAB
     Indication: COLITIS ULCERATIVE
     Route: 042
     Dates: start: 201711

REACTIONS (7)
  - Product dose omission [Unknown]
  - Off label use [Unknown]
  - Product use issue [Unknown]
  - Antinuclear antibody increased [Unknown]
  - Feeling abnormal [Not Recovered/Not Resolved]
  - Hospitalisation [Unknown]
  - Muscle spasms [Unknown]
